FAERS Safety Report 22595235 (Version 1)
Quarter: 2023Q2

REPORT INFORMATION
  Report Type: Spontaneous
  Country: IN (occurrence: IN)
  Receive Date: 20230613
  Receipt Date: 20230613
  Transmission Date: 20230722
  Serious: Yes (Death)
  Sender: FDA-Public Use
  Company Number: IN-PFIZER INC-PV202300028440

PATIENT
  Age: 26 Year
  Sex: Male
  Weight: 45 kg

DRUGS (2)
  1. INOTUZUMAB OZOGAMICIN [Suspect]
     Active Substance: INOTUZUMAB OZOGAMICIN
     Dosage: 1 MG
     Route: 042
     Dates: start: 20230128
  2. INOTUZUMAB OZOGAMICIN [Suspect]
     Active Substance: INOTUZUMAB OZOGAMICIN
     Dosage: 1 MG
     Route: 042
     Dates: start: 20230203

REACTIONS (3)
  - Death [Fatal]
  - Pyrexia [Unknown]
  - Hypersensitivity [Unknown]
